FAERS Safety Report 23771255 (Version 1)
Quarter: 2024Q2

REPORT INFORMATION
  Report Type: Spontaneous
  Country: JP (occurrence: JP)
  Receive Date: 20240423
  Receipt Date: 20240423
  Transmission Date: 20240716
  Serious: Yes (Hospitalization, Other)
  Sender: FDA-Public Use
  Company Number: JP-AMNEAL PHARMACEUTICALS-2024-AMRX-01312

PATIENT
  Age: 60 Year
  Sex: Male

DRUGS (1)
  1. DIVALPROEX SODIUM ER [Suspect]
     Active Substance: DIVALPROEX SODIUM
     Indication: Epilepsy
     Dosage: UNK
     Route: 048

REACTIONS (3)
  - Atelectasis [Recovered/Resolved]
  - Aspiration [Recovered/Resolved]
  - Respiratory failure [Recovered/Resolved]
